FAERS Safety Report 7852431-5 (Version None)
Quarter: 2011Q4

REPORT INFORMATION
  Report Type: 
  Country: None (occurrence: None)
  Receive Date: 20111026
  Receipt Date: 20111019
  Transmission Date: 20120403
  Serious: Yes (Life-Threatening)
  Sender: FDA-Public Use
  Company Number: JP-BAYER-2011-092012

PATIENT
  Age: 76 Year
  Sex: Male
  Weight: 58 kg

DRUGS (8)
  1. OMEPRAZOLE [Concomitant]
     Indication: GASTROOESOPHAGEAL REFLUX DISEASE
     Dosage: DAILY DOSE 20 MG
     Route: 048
  2. LIVACT [Concomitant]
     Indication: HEPATIC CIRRHOSIS
     Dosage: DAILY DOSE 3 DF
     Route: 048
     Dates: start: 20100205
  3. LACTULOSE [Concomitant]
     Indication: HEPATIC CIRRHOSIS
     Dosage: DAILY DOSE 60 ML
     Route: 048
  4. KANAMYCIN [Concomitant]
     Indication: HEPATIC CIRRHOSIS
     Dosage: DAILY DOSE 1000 MG
     Route: 048
  5. NEXAVAR [Suspect]
     Indication: HEPATIC NEOPLASM MALIGNANT
     Dosage: 400 MG, QD
     Route: 048
     Dates: start: 20110913, end: 20110916
  6. URSO 250 [Concomitant]
     Indication: HEPATIC CIRRHOSIS
     Dosage: DAILY DOSE 600 MG
     Route: 048
  7. LASIX [Concomitant]
     Indication: OEDEMA
     Dosage: DAILY DOSE 20 MG
     Route: 048
  8. ALLOPURINOL [Concomitant]
     Indication: HYPERURICAEMIA
     Dosage: DAILY DOSE 100 MG
     Route: 048

REACTIONS (1)
  - HEPATIC ENCEPHALOPATHY [None]
